FAERS Safety Report 10356534 (Version 1)
Quarter: 2014Q3

REPORT INFORMATION
  Report Type: Spontaneous
  Country: US (occurrence: None)
  Receive Date: 20140730
  Receipt Date: 20140730
  Transmission Date: 20150326
  Serious: Yes (Hospitalization)
  Sender: FDA-Public Use
  Company Number: None

PATIENT
  Age: 76 Year
  Sex: Male
  Weight: 24.58 kg

DRUGS (2)
  1. 5-FU [Suspect]
     Active Substance: FLUOROURACIL
  2. ELOXATIN [Suspect]
     Active Substance: OXALIPLATIN

REACTIONS (3)
  - Pyrexia [None]
  - Chills [None]
  - Blood culture positive [None]

NARRATIVE: CASE EVENT DATE: 20140727
